FAERS Safety Report 6286594-2 (Version None)
Quarter: 2009Q3

REPORT INFORMATION
  Report Type: 
  Country: None (occurrence: None)
  Receive Date: 20090728
  Receipt Date: 20090714
  Transmission Date: 20100115
  Serious: Yes (Other)
  Sender: FDA-Public Use
  Company Number: PHHY2009BE29306

PATIENT

DRUGS (1)
  1. ZOLEDRONIC ACID [Suspect]

REACTIONS (5)
  - BONE DISORDER [None]
  - DEBRIDEMENT [None]
  - INFECTION [None]
  - OSTEONECROSIS [None]
  - PAIN IN JAW [None]
